FAERS Safety Report 4608629-2 (Version None)
Quarter: 2005Q1

REPORT INFORMATION
  Report Type: 
  Country: None (occurrence: None)
  Receive Date: 20050311
  Receipt Date: 20050311
  Transmission Date: 20050727
  Serious: Yes (Hospitalization)
  Sender: FDA-Public Use
  Company Number: None

PATIENT
  Age: 54 Year
  Sex: Male
  Weight: 83.4619 kg

DRUGS (1)
  1. MIDAZOLAM [Suspect]
     Indication: INDUCTION OF ANAESTHESIA
     Dosage: 1 MG  X 1  INTRAVENOUS
     Route: 042
     Dates: start: 20050308, end: 20050308

REACTIONS (3)
  - ARTHRALGIA [None]
  - CHEST PAIN [None]
  - PROCEDURAL HYPOTENSION [None]
